FAERS Safety Report 6817348-3 (Version None)
Quarter: 2010Q3

REPORT INFORMATION
  Report Type: 
  Country: None (occurrence: None)
  Receive Date: 20100706
  Receipt Date: 20100629
  Transmission Date: 20110219
  Serious: Yes (Death)
  Sender: FDA-Public Use
  Company Number: CO-ROCHE-712113

PATIENT
  Sex: Female

DRUGS (1)
  1. HERCEPTIN [Suspect]
     Indication: BREAST CANCER
     Dosage: FREQUENCY REPORTED AS Q21DAYS, FORM: INFUSION.
     Route: 042
     Dates: start: 20090127, end: 20100205

REACTIONS (1)
  - CARDIOPULMONARY FAILURE [None]
